FAERS Safety Report 5273472-0 (Version None)
Quarter: 2007Q1

REPORT INFORMATION
  Report Type: 
  Country: None (occurrence: None)
  Receive Date: 20061219
  Receipt Date: 20061017
  Transmission Date: 20070707
  Serious: Yes (Hospitalization, Other)
  Sender: FDA-Public Use
  Company Number: US-JNJFOC-20060600938

PATIENT
  Age: 38 Year
  Sex: Female
  Weight: 52.1637 kg

DRUGS (7)
  1. ORTHO EVRA [Suspect]
     Indication: DRUG USE FOR UNKNOWN INDICATION
     Dosage: 1 DOSE(S), 3 IN 4 WEEK, TRANSDERMAL
     Route: 062
     Dates: start: 20020901, end: 20040626
  2. TAPAZOLE [Concomitant]
  3. CORGARD [Concomitant]
  4. CIPRO XR [Concomitant]
  5. METHIMAZOLE [Concomitant]
  6. NADOLOL [Concomitant]
  7. VIOXX [Concomitant]

REACTIONS (3)
  - MIGRAINE [None]
  - MYOCARDIAL INFARCTION [None]
  - TRANSIENT ISCHAEMIC ATTACK [None]
